FAERS Safety Report 8132039-7 (Version None)
Quarter: 2012Q1

REPORT INFORMATION
  Report Type: 
  Country: None (occurrence: None)
  Receive Date: 20120208
  Receipt Date: 20120201
  Transmission Date: 20120608
  Serious: Yes (Death)
  Sender: FDA-Public Use
  Company Number: OMPQ-PR-1112S-1922

PATIENT
  Age: 50 Year
  Sex: Female

DRUGS (1)
  1. OMNIPAQUE (IOHEXOL) [Suspect]
     Indication: CHEST PAIN
     Dosage: 100 ML, SINGLE DOSE, INTRAVENOUS
     Route: 042
     Dates: start: 20111212, end: 20111212

REACTIONS (1)
  - DEATH [None]
